FAERS Safety Report 5025592-3 (Version None)
Quarter: 2006Q2

REPORT INFORMATION
  Report Type: 
  Country: None (occurrence: None)
  Receive Date: 20060614
  Receipt Date: 20060605
  Transmission Date: 20061013
  Serious: Yes (Other)
  Sender: FDA-Public Use
  Company Number: 2006AP02551

PATIENT
  Age: 73 Year
  Weight: 50 kg

DRUGS (1)
  1. MEROPENEM [Suspect]

REACTIONS (1)
  - PSYCHIATRIC SYMPTOM [None]
